FAERS Safety Report 10878572 (Version 1)
Quarter: 2015Q1

REPORT INFORMATION
  Report Type: Report from Study
  Country: US (occurrence: US)
  Receive Date: 20150302
  Receipt Date: 20150302
  Transmission Date: 20150721
  Serious: No
  Sender: FDA-Public Use
  Company Number: US-ABBVIE-14P-163-1211153-00

PATIENT
  Age: 45 Year
  Sex: Male
  Weight: 99.88 kg

DRUGS (2)
  1. ANDROGEL [Suspect]
     Active Substance: TESTOSTERONE
     Indication: BLOOD TESTOSTERONE DECREASED
     Route: 061
     Dates: start: 201401, end: 201402
  2. ANDROGEL [Suspect]
     Active Substance: TESTOSTERONE
     Dosage: PATIENT DECREASED HIS DOSE, BECAUSE HE WAS RUNNING OUT OF MEDICATION.
     Route: 061
     Dates: start: 201402, end: 20140218

REACTIONS (2)
  - Sluggishness [Not Recovered/Not Resolved]
  - Incorrect dose administered [Not Recovered/Not Resolved]

NARRATIVE: CASE EVENT DATE: 201402
